FAERS Safety Report 19269083 (Version 1)
Quarter: 2021Q2

REPORT INFORMATION
  Report Type: Spontaneous
  Country: FR (occurrence: FR)
  Receive Date: 20210518
  Receipt Date: 20210518
  Transmission Date: 20210717
  Serious: Yes (Hospitalization)
  Sender: FDA-Public Use
  Company Number: FR-CADILA HEALTHCARE LIMITED-FR-ZYDUS-065545

PATIENT

DRUGS (2)
  1. ATENOLOL. [Suspect]
     Active Substance: ATENOLOL
     Indication: PRODUCT USED FOR UNKNOWN INDICATION
     Dosage: 4500 MILLIGRAM (90 TABLET)
     Route: 048
  2. AMLODIPINE [Suspect]
     Active Substance: AMLODIPINE BESYLATE
     Indication: PRODUCT USED FOR UNKNOWN INDICATION
     Dosage: 450 MILLIGRAM (90 TABLETS)
     Route: 048

REACTIONS (7)
  - Cardiogenic shock [Unknown]
  - Somnolence [Unknown]
  - Vasoplegia syndrome [Unknown]
  - Intentional overdose [Unknown]
  - Atrioventricular block first degree [Unknown]
  - Hypotension [Unknown]
  - Toxicity to various agents [Unknown]
